FAERS Safety Report 23933292 (Version 2)
Quarter: 2024Q2

REPORT INFORMATION
  Report Type: Report from Study
  Country: US (occurrence: US)
  Receive Date: 20240603
  Receipt Date: 20240613
  Transmission Date: 20240716
  Serious: No
  Sender: FDA-Public Use
  Company Number: US-PFIZER INC-PV202400071220

PATIENT
  Age: 51 Year
  Sex: Female

DRUGS (2)
  1. TUKYSA [Suspect]
     Active Substance: TUCATINIB
     Indication: Metastasis
  2. TUKYSA [Suspect]
     Active Substance: TUCATINIB
     Indication: Breast neoplasm

REACTIONS (3)
  - Diarrhoea [Unknown]
  - Vomiting [Unknown]
  - Skin discolouration [Unknown]
